FAERS Safety Report 21364847 (Version 1)
Quarter: 2022Q3

REPORT INFORMATION
  Report Type: Report from Study
  Country: US (occurrence: US)
  Receive Date: 20220922
  Receipt Date: 20220922
  Transmission Date: 20221026
  Serious: Yes (Death, Hospitalization)
  Sender: FDA-Public Use
  Company Number: US-NOVARTISPH-NVSC2022US213724

PATIENT
  Age: 78 Year
  Sex: Male

DRUGS (1)
  1. ENTRESTO [Suspect]
     Active Substance: SACUBITRIL\VALSARTAN
     Indication: Cardiac failure
     Dosage: UNK UNK, BID (24/26 MG (1/2 TAB)
     Route: 048
     Dates: start: 202107

REACTIONS (10)
  - Death [Fatal]
  - Pneumonia [Fatal]
  - Pulmonary oedema [Unknown]
  - Cardiac disorder [Unknown]
  - Sinus disorder [Unknown]
  - Rhinorrhoea [Unknown]
  - Hypotension [Unknown]
  - Prescribed underdose [Unknown]
  - Wrong technique in product usage process [Unknown]
  - Product dose omission issue [Unknown]

NARRATIVE: CASE EVENT DATE: 20220401
